FAERS Safety Report 25505371 (Version 1)
Quarter: 2025Q3

REPORT INFORMATION
  Report Type: Spontaneous
  Country: US (occurrence: None)
  Receive Date: 20250702
  Receipt Date: 20250702
  Transmission Date: 20251020
  Serious: Yes (Hospitalization)
  Sender: FDA-CTU
  Company Number: None

PATIENT
  Age: 55 Year
  Sex: Female
  Weight: 88.7 kg

DRUGS (1)
  1. JARDIANCE [Suspect]
     Active Substance: EMPAGLIFLOZIN

REACTIONS (5)
  - Diabetic ketoacidosis [None]
  - Hypokalaemia [None]
  - Nausea [None]
  - Vomiting [None]
  - Dizziness [None]

NARRATIVE: CASE EVENT DATE: 20250701
